FAERS Safety Report 16682618 (Version 1)
Quarter: 2019Q3

REPORT INFORMATION
  Report Type: Spontaneous
  Country: US (occurrence: US)
  Receive Date: 20190808
  Receipt Date: 20190808
  Transmission Date: 20191004
  Serious: No
  Sender: FDA-Public Use
  Company Number: US-PFIZER INC-2019335508

PATIENT
  Age: 58 Year
  Sex: Female

DRUGS (1)
  1. XELJANZ XR [Suspect]
     Active Substance: TOFACITINIB CITRATE
     Dosage: 11 MG, DAILY (11MG ONE TABLET DAILY)
     Dates: start: 201902

REACTIONS (6)
  - Arthralgia [Unknown]
  - Back pain [Unknown]
  - Weight increased [Unknown]
  - Blood glucose increased [Unknown]
  - Pain in extremity [Unknown]
  - Joint swelling [Unknown]
